FAERS Safety Report 7581102-8 (Version None)
Quarter: 2011Q2

REPORT INFORMATION
  Report Type: 
  Country: None (occurrence: None)
  Receive Date: 20110629
  Receipt Date: 20110617
  Transmission Date: 20111010
  Serious: Yes (Other)
  Sender: FDA-Public Use
  Company Number: US-JNJFOC-20110608794

PATIENT
  Sex: Male
  Weight: 113.4 kg

DRUGS (2)
  1. REMICADE [Suspect]
     Dosage: 3 VIALS
     Route: 042
     Dates: start: 20110601
  2. REMICADE [Suspect]
     Indication: CROHN'S DISEASE
     Route: 042
     Dates: start: 19980101

REACTIONS (6)
  - BREAKTHROUGH PAIN [None]
  - ABDOMINAL DISCOMFORT [None]
  - DRUG INEFFECTIVE [None]
  - DEPRESSION [None]
  - INCORRECT DOSE ADMINISTERED [None]
  - ANXIETY [None]
